FAERS Safety Report 5409979-2 (Version None)
Quarter: 2007Q3

REPORT INFORMATION
  Report Type: 
  Country: None (occurrence: None)
  Receive Date: 20070809
  Receipt Date: 20070731
  Transmission Date: 20080115
  Serious: Yes (Other)
  Sender: FDA-Public Use
  Company Number: US-PFIZER INC-2007063754

PATIENT

DRUGS (1)
  1. ADRIBLASTIN SOLUTION [Suspect]

REACTIONS (1)
  - LUNG NEOPLASM [None]
